FAERS Safety Report 13815253 (Version 1)
Quarter: 2017Q3

REPORT INFORMATION
  Report Type: Spontaneous
  Country: US (occurrence: US)
  Receive Date: 20170729
  Receipt Date: 20170729
  Transmission Date: 20171127
  Serious: No
  Sender: FDA-Public Use
  Company Number: None

PATIENT
  Age: 39 Year
  Sex: Female

DRUGS (1)
  1. SPIRONOLACT [Suspect]
     Active Substance: SPIRONOLACTONE
     Dates: start: 20170717, end: 20170728

REACTIONS (3)
  - Product substitution issue [None]
  - Drug ineffective [None]
  - Hair growth abnormal [None]

NARRATIVE: CASE EVENT DATE: 20170729
